FAERS Safety Report 23229655 (Version 1)
Quarter: 2023Q4

REPORT INFORMATION
  Report Type: Spontaneous
  Country: US (occurrence: None)
  Receive Date: 20231127
  Receipt Date: 20231127
  Transmission Date: 20240110
  Serious: No
  Sender: FDA-Public Use
  Company Number: US-ROCHE-3256899

PATIENT
  Age: 40 Year
  Sex: Female

DRUGS (1)
  1. PULMOZYME [Suspect]
     Active Substance: DORNASE ALFA
     Indication: Primary ciliary dyskinesia
     Dosage: YES
     Route: 065

REACTIONS (9)
  - Intentional product misuse [Unknown]
  - Off label use [Unknown]
  - Cough [Unknown]
  - Secretion discharge [Unknown]
  - COVID-19 [Recovered/Resolved]
  - Gastroenteritis viral [Unknown]
  - Dyspepsia [Unknown]
  - Abdominal distension [Unknown]
  - Flatulence [Unknown]

NARRATIVE: CASE EVENT DATE: 20211001
